FAERS Safety Report 24914656 (Version 1)
Quarter: 2025Q1

REPORT INFORMATION
  Report Type: Spontaneous
  Country: GB (occurrence: GB)
  Receive Date: 20250203
  Receipt Date: 20250203
  Transmission Date: 20250408
  Serious: Yes (Other)
  Sender: NOVO NORDISK
  Company Number: GB-NOVOPROD-1359764

PATIENT
  Age: 46 Year
  Sex: Female

DRUGS (1)
  1. OZEMPIC [Suspect]
     Active Substance: SEMAGLUTIDE
     Indication: Weight control

REACTIONS (6)
  - Near death experience [Unknown]
  - Vision blurred [Unknown]
  - Vomiting [Unknown]
  - Diarrhoea [Unknown]
  - Counterfeit product administered [Unknown]
  - Product use in unapproved indication [Unknown]
